FAERS Safety Report 22123196 (Version 1)
Quarter: 2023Q1

REPORT INFORMATION
  Report Type: Spontaneous
  Country: US (occurrence: US)
  Receive Date: 20230322
  Receipt Date: 20230322
  Transmission Date: 20230417
  Serious: No
  Sender: FDA-Public Use
  Company Number: US-ASCENDIS PHARMA-2023US001826

PATIENT

DRUGS (2)
  1. SKYTROFA [Suspect]
     Active Substance: LONAPEGSOMATROPIN-TCGD
     Indication: Growth hormone deficiency
     Dosage: 7.6 MILLIGRAM, WEEKLY
     Route: 058
     Dates: end: 20221028
  2. SKYTROFA [Suspect]
     Active Substance: LONAPEGSOMATROPIN-TCGD
     Dosage: 3.6 MILLIGRAM, WEEKLY
     Route: 058
     Dates: start: 20221028, end: 20230205

REACTIONS (9)
  - Weight increased [Not Recovered/Not Resolved]
  - Hunger [Unknown]
  - Dizziness [Unknown]
  - Blood glucose decreased [Unknown]
  - Bone densitometry [Not Recovered/Not Resolved]
  - Sleep apnoea syndrome [Unknown]
  - Tonsillar hypertrophy [Recovered/Resolved]
  - Hypoxia [Unknown]
  - Insulin-like growth factor increased [Not Recovered/Not Resolved]

NARRATIVE: CASE EVENT DATE: 20221020
